FAERS Safety Report 9337234 (Version 1)
Quarter: 2013Q2

REPORT INFORMATION
  Report Type: Spontaneous
  Country: US (occurrence: US)
  Receive Date: 20130607
  Receipt Date: 20130607
  Transmission Date: 20140414
  Serious: Yes (Other)
  Sender: FDA-Public Use
  Company Number: US-UCBSA-088148

PATIENT
  Sex: Female

DRUGS (6)
  1. KEPPRA [Suspect]
     Indication: EPILEPSY
  2. VIMPAT [Suspect]
     Indication: EPILEPSY
  3. ZONESOMIDE [Concomitant]
     Indication: EPILEPSY
  4. LAMICTAL [Concomitant]
     Indication: EPILEPSY
  5. TRANXEN [Concomitant]
     Indication: EPILEPSY
  6. TRILEPTAL [Concomitant]
     Indication: EPILEPSY

REACTIONS (2)
  - Grand mal convulsion [Unknown]
  - Drug ineffective [Unknown]
